FAERS Safety Report 17564002 (Version 1)
Quarter: 2020Q1

REPORT INFORMATION
  Report Type: Report from Study
  Country: IT (occurrence: IT)
  Receive Date: 20200320
  Receipt Date: 20200320
  Transmission Date: 20200409
  Serious: Yes (Hospitalization)
  Sender: FDA-Public Use
  Company Number: IT-TEVA-2020-IT-1205470

PATIENT
  Age: 44 Year
  Sex: Female

DRUGS (3)
  1. QUETIAPINE FUMARATE. [Suspect]
     Active Substance: QUETIAPINE FUMARATE
     Indication: INTENTIONAL OVERDOSE
     Dosage: 2000 MG
     Route: 048
     Dates: start: 20191223, end: 20191223
  2. EN [Suspect]
     Active Substance: DELORAZEPAM
     Indication: INTENTIONAL OVERDOSE
     Dosage: 4 DF
     Route: 048
     Dates: start: 20191223, end: 20191223
  3. HALDOL [Suspect]
     Active Substance: HALOPERIDOL
     Indication: INTENTIONAL OVERDOSE
     Dosage: 30 GTT
     Route: 048
     Dates: start: 20191223, end: 20191223

REACTIONS (4)
  - Bradyphrenia [Recovered/Resolved]
  - Drug abuse [Recovered/Resolved]
  - Sedation [Recovered/Resolved]
  - Hypokinesia [Recovered/Resolved]

NARRATIVE: CASE EVENT DATE: 20191223
